FAERS Safety Report 5093455-3 (Version None)
Quarter: 2006Q3

REPORT INFORMATION
  Report Type: 
  Country: None (occurrence: None)
  Receive Date: 20060828
  Receipt Date: 20060818
  Transmission Date: 20061208
  Serious: Yes (Hospitalization, Other)
  Sender: FDA-Public Use
  Company Number: L06-GER-03327-01

PATIENT
  Age: 34 Year
  Sex: Male

DRUGS (1)
  1. CARBAMAZEPINE [Suspect]
     Indication: COMPLEX PARTIAL SEIZURES
     Dosage: 1.6 G QD

REACTIONS (14)
  - ASTHENIA [None]
  - BACK PAIN [None]
  - CUTANEOUS VASCULITIS [None]
  - EYE PAIN [None]
  - EYE PRURITUS [None]
  - GAMMA-GLUTAMYLTRANSFERASE INCREASED [None]
  - HAEMOGLOBIN DECREASED [None]
  - LEUKOPENIA [None]
  - LYMPHADENOPATHY [None]
  - PHOTOSENSITIVITY REACTION [None]
  - PLEURITIC PAIN [None]
  - POLYARTHRITIS [None]
  - SPLENOMEGALY [None]
  - SYSTEMIC LUPUS ERYTHEMATOSUS [None]
